FAERS Safety Report 24570960 (Version 2)
Quarter: 2025Q2

REPORT INFORMATION
  Report Type: Spontaneous
  Country: US (occurrence: US)
  Receive Date: 20241101
  Receipt Date: 20250607
  Transmission Date: 20250717
  Serious: No
  Sender: STEMLINE THERAPEUTICS
  Company Number: US-STEMLINE THERAPEUTICS, INC-2024-STML-US004719

PATIENT

DRUGS (1)
  1. ORSERDU [Suspect]
     Active Substance: ELACESTRANT
     Indication: Product used for unknown indication
     Dosage: 345 MG, DAILY (DAY CYCLE)
     Route: 048
     Dates: start: 20230312, end: 20240830

REACTIONS (3)
  - Amnesia [Unknown]
  - Constipation [Unknown]
  - Diarrhoea [Unknown]
